FAERS Safety Report 7602498-4 (Version None)
Quarter: 2011Q2

REPORT INFORMATION
  Report Type: 
  Country: None (occurrence: None)
  Receive Date: 20110601
  Receipt Date: 20100701
  Transmission Date: 20111010
  Serious: Yes (Hospitalization, Other)
  Sender: FDA-Public Use
  Company Number: 236734USA

PATIENT
  Age: 40 Year
  Sex: Female

DRUGS (2)
  1. SEASONIQUE TABLET, ETHINYLESTRADIOL W/LEVONORGESTREL (ETHINYLESTRADIOL [Suspect]
     Indication: ASTHENIA
     Dosage: ORAL
     Route: 048
     Dates: start: 20100301, end: 20100428
  2. SEASONIQUE TABLET, ETHINYLESTRADIOL W/LEVONORGESTREL (ETHINYLESTRADIOL [Suspect]
     Indication: ANAEMIA
     Dosage: ORAL
     Route: 048
     Dates: start: 20100301, end: 20100428

REACTIONS (11)
  - GROIN PAIN [None]
  - CHEST PAIN [None]
  - DIZZINESS [None]
  - PAIN [None]
  - GAIT DISTURBANCE [None]
  - PULMONARY THROMBOSIS [None]
  - BLOOD DISORDER [None]
  - THROMBOSIS [None]
  - ACTIVITIES OF DAILY LIVING IMPAIRED [None]
  - IMPAIRED DRIVING ABILITY [None]
  - MALAISE [None]
